FAERS Safety Report 5775145-4 (Version None)
Quarter: 2008Q2

REPORT INFORMATION
  Report Type: 
  Country: None (occurrence: None)
  Receive Date: 20080616
  Receipt Date: 20080616
  Transmission Date: 20081010
  Serious: Yes (Disabling)
  Sender: FDA-Public Use
  Company Number: None

PATIENT
  Sex: Female
  Weight: 66.2252 kg

DRUGS (1)
  1. EVISTA [Suspect]
     Indication: OSTEOPENIA
     Dosage: 1 PER DAY PO
     Route: 048
     Dates: start: 20060101, end: 20080501

REACTIONS (3)
  - RETINAL VEIN OCCLUSION [None]
  - THROMBOSIS [None]
  - VISION BLURRED [None]
